FAERS Safety Report 4837432-3 (Version None)
Quarter: 2005Q4

REPORT INFORMATION
  Report Type: 
  Country: None (occurrence: None)
  Receive Date: 20051128
  Receipt Date: 20051118
  Transmission Date: 20060501
  Serious: Yes (Hospitalization)
  Sender: FDA-Public Use
  Company Number: FI-JNJFOC-20051102768

PATIENT
  Sex: Female

DRUGS (13)
  1. DURAGESIC-100 [Suspect]
     Route: 062
  2. DURAGESIC-100 [Suspect]
     Indication: PAIN
     Route: 062
  3. MINITRAN [Concomitant]
     Indication: CHEST PAIN
     Route: 062
  4. DINIT [Concomitant]
     Indication: CHEST PAIN
     Route: 055
  5. EBIXA [Concomitant]
     Route: 048
  6. BISOPROLOL [Concomitant]
     Route: 048
  7. FURESIS [Concomitant]
     Route: 048
  8. IMOVANE [Concomitant]
     Indication: INSOMNIA
     Route: 048
  9. LIPITOR [Concomitant]
     Indication: HYPERCHOLESTEROLAEMIA
     Route: 048
  10. NITROSID RETARD [Concomitant]
     Route: 048
  11. ACETAMINOPHEN [Concomitant]
     Indication: PAIN
     Dosage: 50-1500MG DAILY
     Route: 048
  12. PRIMASPAN [Concomitant]
     Route: 048
  13. SOMAC [Concomitant]
     Route: 048

REACTIONS (2)
  - PAIN [None]
  - PHARMACEUTICAL PRODUCT COMPLAINT [None]
